FAERS Safety Report 5894167-6 (Version None)
Quarter: 2008Q3

REPORT INFORMATION
  Report Type: 
  Country: None (occurrence: None)
  Receive Date: 20080923
  Receipt Date: 20080214
  Transmission Date: 20090109
  Serious: No
  Sender: FDA-Public Use
  Company Number: US-ASTRAZENECA-2008UW03031

PATIENT
  Age: 34 Year
  Sex: Male

DRUGS (7)
  1. SEROQUEL [Suspect]
     Indication: BIPOLAR DISORDER
     Route: 048
  2. SEROQUEL [Interacting]
     Indication: ATTENTION DEFICIT/HYPERACTIVITY DISORDER
     Route: 048
  3. SEROQUEL [Interacting]
     Indication: OBSESSIVE-COMPULSIVE DISORDER
     Route: 048
  4. CHANTIX [Interacting]
  5. LAMICTAL [Interacting]
     Indication: BIPOLAR DISORDER
  6. LAMICTAL [Interacting]
     Indication: ATTENTION DEFICIT/HYPERACTIVITY DISORDER
  7. LAMICTAL [Interacting]
     Indication: OBSESSIVE-COMPULSIVE DISORDER

REACTIONS (4)
  - AGITATION [None]
  - DELUSION [None]
  - DRUG INTERACTION [None]
  - SOMNOLENCE [None]
